FAERS Safety Report 15665668 (Version 1)
Quarter: 2018Q4

REPORT INFORMATION
  Report Type: Report from Study
  Country: US (occurrence: US)
  Receive Date: 20181128
  Receipt Date: 20181128
  Transmission Date: 20190205
  Serious: Yes (Death)
  Sender: FDA-Public Use
  Company Number: US-EXELIXIS-CABO-18017254

PATIENT
  Age: 64 Year
  Sex: Male

DRUGS (11)
  1. DULOXETINE. [Concomitant]
     Active Substance: DULOXETINE
  2. MOBIC [Concomitant]
     Active Substance: MELOXICAM
  3. FENTANYL. [Concomitant]
     Active Substance: FENTANYL
  4. VITAMIN D [Concomitant]
     Active Substance: CHOLECALCIFEROL
  5. BACLOFEN. [Concomitant]
     Active Substance: BACLOFEN
  6. METHOCARBAMOL. [Concomitant]
     Active Substance: METHOCARBAMOL
  7. LIDOCAINE. [Concomitant]
     Active Substance: LIDOCAINE
  8. CABOMETYX [Suspect]
     Active Substance: CABOZANTINIB S-MALATE
     Indication: RENAL CELL CARCINOMA
     Dosage: 60 MG, QD
     Route: 048
  9. FLAXSEED [Concomitant]
     Active Substance: FLAX SEED
  10. MULTIVITAMINS, COMBINATIONS [Concomitant]
     Active Substance: VITAMINS
  11. LOPERAMIDE [Concomitant]
     Active Substance: LOPERAMIDE

REACTIONS (1)
  - Death [Fatal]

NARRATIVE: CASE EVENT DATE: 20181117
